FAERS Safety Report 10300705 (Version 3)
Quarter: 2014Q4

REPORT INFORMATION
  Report Type: Report from Study
  Country: US (occurrence: US)
  Receive Date: 20140714
  Receipt Date: 20141027
  Transmission Date: 20150528
  Serious: Yes (Hospitalization)
  Sender: FDA-Public Use
  Company Number: US-BIOGENIDEC-203206

PATIENT
  Age: 54 Year
  Sex: Female
  Weight: 78 kg

DRUGS (5)
  1. AVONEX [Suspect]
     Active Substance: INTERFERON BETA-1A
     Indication: MULTIPLE SCLEROSIS
     Route: 030
     Dates: start: 199701, end: 200308
  2. DIAZEPAM. [Concomitant]
     Active Substance: DIAZEPAM
     Indication: MUSCLE SPASMS
  3. SYNTHROID [Concomitant]
     Active Substance: LEVOTHYROXINE SODIUM
  4. AVONEX [Suspect]
     Active Substance: INTERFERON BETA-1A
     Indication: MULTIPLE SCLEROSIS
     Route: 030
  5. AVONEX [Suspect]
     Active Substance: INTERFERON BETA-1A
     Indication: MULTIPLE SCLEROSIS
     Route: 030
     Dates: start: 200308

REACTIONS (32)
  - Arthralgia [Recovered/Resolved]
  - Osteoarthritis [Unknown]
  - Abasia [Recovered/Resolved]
  - Injury [Recovered/Resolved]
  - Tremor [Recovered/Resolved]
  - Wheezing [Recovered/Resolved]
  - Procedural pain [Recovered/Resolved]
  - Influenza like illness [Recovered/Resolved]
  - Ligament rupture [Recovered/Resolved]
  - Blood cholesterol increased [Unknown]
  - Cartilage injury [Recovered/Resolved]
  - Sinusitis [Recovered/Resolved]
  - Blood pressure increased [Recovered/Resolved]
  - Sneezing [Recovered/Resolved]
  - Aphasia [Recovered/Resolved]
  - Speech disorder [Not Recovered/Not Resolved]
  - Injection site pain [Recovered/Resolved]
  - Thyroid function test abnormal [Unknown]
  - Depressed mood [Recovered/Resolved]
  - Joint swelling [Recovered/Resolved]
  - Stress [Recovered/Resolved]
  - Muscle strain [Recovered/Resolved]
  - Rhinitis [Recovered/Resolved]
  - Fall [Recovered/Resolved]
  - Balance disorder [Recovered/Resolved]
  - Blood glucose increased [Recovered/Resolved]
  - Cough [Recovered/Resolved]
  - Rhinitis allergic [Recovered/Resolved]
  - Oropharyngeal pain [Recovered/Resolved]
  - Joint stiffness [Recovered/Resolved]
  - Nausea [Recovered/Resolved]
  - Vomiting [Recovered/Resolved]

NARRATIVE: CASE EVENT DATE: 1997
